FAERS Safety Report 4989277-1 (Version None)
Quarter: 2006Q2

REPORT INFORMATION
  Report Type: 
  Country: None (occurrence: None)
  Receive Date: 20060425
  Receipt Date: 20060412
  Transmission Date: 20061013
  Serious: Yes (Other)
  Sender: FDA-Public Use
  Company Number: 2006011839

PATIENT
  Age: 56 Year
  Sex: Male
  Weight: 74.8435 kg

DRUGS (9)
  1. XALATAN [Suspect]
     Indication: GLAUCOMA
     Dosage: 3 MCG (1.5 MCG), OPHTHALMIC
     Route: 047
     Dates: start: 19960101, end: 20050101
  2. NORVASC [Suspect]
     Indication: BLOOD PRESSURE INCREASED
     Dosage: 2.5 MG (2.5 MG, 1 IN 1 D)
     Dates: start: 20060407
  3. TRUSOPT [Concomitant]
  4. TIMOPTIC [Concomitant]
  5. COSOPT [Concomitant]
  6. ALPHAGAN [Concomitant]
  7. PROPINE [Concomitant]
  8. ALL OTHER THERAPEUTIC PRODUCTS [Concomitant]
  9. ISOPTO-CARBACHOL (CARBACHOL) [Concomitant]

REACTIONS (7)
  - BLOOD PRESSURE INCREASED [None]
  - CATARACT [None]
  - DRUG INEFFECTIVE [None]
  - DRY EYE [None]
  - INTRAOCULAR PRESSURE INCREASED [None]
  - SURGICAL PROCEDURE REPEATED [None]
  - VISUAL DISTURBANCE [None]
